FAERS Safety Report 24544411 (Version 1)
Quarter: 2024Q4

REPORT INFORMATION
  Report Type: Spontaneous
  Country: CN (occurrence: CN)
  Receive Date: 20241024
  Receipt Date: 20241024
  Transmission Date: 20250114
  Serious: Yes (Hospitalization)
  Sender: Steriscience PTE
  Company Number: CN-STERISCIENCE B.V.-2024-ST-001716

PATIENT
  Age: 50 Year
  Sex: Female

DRUGS (1)
  1. PIPERACILLIN SODIUM\TAZOBACTAM SODIUM [Suspect]
     Active Substance: PIPERACILLIN SODIUM\TAZOBACTAM SODIUM
     Indication: Pneumonia
     Dosage: 4.5 GRAM, EVERY 8 HOUR
     Route: 065

REACTIONS (17)
  - Blood fibrinogen decreased [None]
  - Lymphocyte count increased [None]
  - Activated partial thromboplastin time prolonged [None]
  - Monocyte count decreased [None]
  - Fibrin D dimer increased [None]
  - C-reactive protein increased [None]
  - Procalcitonin increased [None]
  - Blood lactate dehydrogenase increased [None]
  - Pyrexia [None]
  - Neutrophil count decreased [None]
  - White blood cell count decreased [None]
  - Eosinophil count increased [None]
  - Prothrombin time prolonged [None]
  - Alanine aminotransferase increased [None]
  - Aspartate aminotransferase increased [None]
  - Gamma-glutamyltransferase increased [None]
  - Blood alkaline phosphatase increased [None]
